FAERS Safety Report 9521577 (Version 12)
Quarter: 2018Q3

REPORT INFORMATION
  Report Type: Report from Study
  Country: CA (occurrence: CA)
  Receive Date: 20130913
  Receipt Date: 20180830
  Transmission Date: 20181010
  Serious: Yes (Hospitalization, Other)
  Sender: FDA-Public Use
  Company Number: CA-ROCHE-1135496

PATIENT
  Age: 55 Year
  Sex: Female
  Weight: 106 kg

DRUGS (22)
  1. VENTOLIN [Concomitant]
     Active Substance: ALBUTEROL SULFATE
  2. ACETAMINOPHEN. [Concomitant]
     Active Substance: ACETAMINOPHEN
     Route: 048
     Dates: start: 20120913, end: 20180405
  3. DIPHENHYDRAMINE. [Concomitant]
     Active Substance: DIPHENHYDRAMINE
     Route: 048
     Dates: start: 20120913, end: 20180405
  4. ASPIRIN. [Concomitant]
     Active Substance: ASPIRIN
  5. METFORMIN [Concomitant]
     Active Substance: METFORMIN HYDROCHLORIDE
  6. SULFASALAZINE. [Concomitant]
     Active Substance: SULFASALAZINE
  7. ELAVIL [Concomitant]
     Active Substance: AMITRIPTYLINE HYDROCHLORIDE
  8. FLUNARIZINE [Concomitant]
     Active Substance: FLUNARIZINE
  9. METHYLPREDNISOLONE. [Concomitant]
     Active Substance: METHYLPREDNISOLONE
     Route: 042
     Dates: start: 20120913, end: 20180405
  10. LOSEC [Concomitant]
     Active Substance: OMEPRAZOLE
  11. SPIRONOLACTONE. [Concomitant]
     Active Substance: SPIRONOLACTONE
  12. ATASOL PLAIN [Concomitant]
  13. VERAPAMIL [Concomitant]
     Active Substance: VERAPAMIL HYDROCHLORIDE
  14. PREDNISONE. [Concomitant]
     Active Substance: PREDNISONE
  15. HALOPERIDOL. [Concomitant]
     Active Substance: HALOPERIDOL
  16. RITUXAN [Suspect]
     Active Substance: RITUXIMAB
     Indication: RHEUMATOID ARTHRITIS
     Dosage: PREVIOUS RITUXAN DOSE WAS RECEIVED ON 17/OCT/2017
     Route: 042
     Dates: start: 20120913, end: 20180405
  17. EMPRACET (ACETAMINOPHEN/CODEINE PHOSPHATE) [Concomitant]
  18. DOCUSATE [Concomitant]
     Active Substance: DOCUSATE
  19. PLAQUENIL [Concomitant]
     Active Substance: HYDROXYCHLOROQUINE SULFATE
  20. PULMICORT TURBUHALER [Concomitant]
     Active Substance: BUDESONIDE
  21. FOLIC ACID. [Concomitant]
     Active Substance: FOLIC ACID
  22. METHOTREXATE. [Concomitant]
     Active Substance: METHOTREXATE

REACTIONS (13)
  - Breast cancer [Unknown]
  - Respiratory tract infection [Not Recovered/Not Resolved]
  - Fall [Not Recovered/Not Resolved]
  - Incision site abscess [Recovering/Resolving]
  - Foot fracture [Unknown]
  - Migraine [Recovered/Resolved]
  - Upper respiratory tract infection [Recovered/Resolved]
  - Pyelonephritis acute [Recovered/Resolved]
  - Loss of personal independence in daily activities [Not Recovered/Not Resolved]
  - Pituitary tumour [Unknown]
  - Skin infection [Not Recovered/Not Resolved]
  - Rheumatoid arthritis [Not Recovered/Not Resolved]
  - Treatment failure [Unknown]

NARRATIVE: CASE EVENT DATE: 20120913
